FAERS Safety Report 6058685-2 (Version None)
Quarter: 2009Q1

REPORT INFORMATION
  Report Type: 
  Country: None (occurrence: None)
  Receive Date: 20090130
  Receipt Date: 20090120
  Transmission Date: 20090719
  Serious: Yes (Other)
  Sender: FDA-Public Use
  Company Number: IT-BAYER-200911613GPV

PATIENT
  Age: 84 Year
  Sex: Male

DRUGS (4)
  1. ASPIRIN [Suspect]
     Indication: RHEUMATIC HEART DISEASE
     Dosage: TOTAL DAILY DOSE: 100 MG  UNIT DOSE: 100 MG
     Route: 048
     Dates: start: 20080101, end: 20081228
  2. TEVETEN [Concomitant]
     Indication: HYPERTENSION
     Dosage: TOTAL DAILY DOSE: 600 MG  UNIT DOSE: 600 MG
     Route: 048
  3. LASIX [Concomitant]
     Indication: HYPERTENSION
     Route: 048
  4. ADALAT CRONO (NIFEDIPINE) [Concomitant]
     Indication: RHEUMATIC HEART DISEASE
     Dosage: TOTAL DAILY DOSE: 30 MG  UNIT DOSE: 30 MG
     Route: 048

REACTIONS (2)
  - CALCULUS BLADDER [None]
  - HAEMATURIA [None]
